FAERS Safety Report 17891958 (Version 4)
Quarter: 2021Q1

REPORT INFORMATION
  Report Type: Report from Study
  Country: CA (occurrence: CA)
  Receive Date: 20200612
  Receipt Date: 20210111
  Transmission Date: 20210419
  Serious: Yes (Hospitalization)
  Sender: FDA-Public Use
  Company Number: PHHY2019CA001474

PATIENT
  Sex: Male

DRUGS (3)
  1. SANDOSTATIN LAR DEPOT [Suspect]
     Active Substance: OCTREOTIDE ACETATE
     Indication: CARCINOID SYNDROME
     Dosage: 30 MG, QMO (ONCE A MONTH)
     Route: 030
     Dates: start: 19991208
  2. SANDOSTATIN LAR DEPOT [Suspect]
     Active Substance: OCTREOTIDE ACETATE
  3. SANDOSTATIN LAR DEPOT [Suspect]
     Active Substance: OCTREOTIDE ACETATE
     Indication: CARCINOID TUMOUR

REACTIONS (13)
  - Chest discomfort [Unknown]
  - Constipation [Unknown]
  - Chest pain [Unknown]
  - Fatigue [Unknown]
  - Skin disorder [Unknown]
  - Nausea [Unknown]
  - Abdominal discomfort [Unknown]
  - Anosmia [Unknown]
  - Dyspepsia [Unknown]
  - Illness [Unknown]
  - Ageusia [Unknown]
  - Bipolar I disorder [Unknown]
  - Dry skin [Unknown]

NARRATIVE: CASE EVENT DATE: 2018
